FAERS Safety Report 17812225 (Version 1)
Quarter: 2020Q2

REPORT INFORMATION
  Report Type: Report from Study
  Country: None (occurrence: US)
  Receive Date: 20200521
  Receipt Date: 20200521
  Transmission Date: 20200714
  Serious: Yes (Death, Other)
  Sender: FDA-Public Use
  Company Number: US-ABBVIE-20K-163-3411748-00

PATIENT
  Age: 83 Year
  Sex: Female

DRUGS (1)
  1. IMBRUVICA [Suspect]
     Active Substance: IBRUTINIB
     Indication: CHRONIC LYMPHOCYTIC LEUKAEMIA
     Route: 048

REACTIONS (13)
  - Sepsis [Unknown]
  - Contusion [Unknown]
  - Nausea [Unknown]
  - Anaemia [Unknown]
  - Lethargy [Unknown]
  - Spinal cord injury [Unknown]
  - Nervous system disorder [Unknown]
  - Pyrexia [Unknown]
  - Neutropenia [Unknown]
  - Thrombocytopenia [Unknown]
  - Death [Fatal]
  - Vomiting [Unknown]
  - Arachnoiditis [Unknown]

NARRATIVE: CASE EVENT DATE: 20140511
